FAERS Safety Report 13644709 (Version 1)
Quarter: 2017Q2

REPORT INFORMATION
  Report Type: Spontaneous
  Country: US (occurrence: US)
  Receive Date: 20170612
  Receipt Date: 20170612
  Transmission Date: 20170830
  Serious: No
  Sender: FDA-Public Use
  Company Number: US-ROCHE-1313472

PATIENT
  Age: 75 Year
  Sex: Female
  Weight: 45.85 kg

DRUGS (2)
  1. XELODA [Suspect]
     Active Substance: CAPECITABINE
     Indication: COLON CANCER
     Dosage: 2 WEEKS ON FOLLOWED BY 1 WEEK OFF.
     Route: 048
     Dates: start: 20131003
  2. XELODA [Suspect]
     Active Substance: CAPECITABINE
     Dosage: 2 WEEKS ON FOLLOWED BY 1 WEEK OFF.
     Route: 048
     Dates: start: 20131003

REACTIONS (7)
  - Rash erythematous [Unknown]
  - Skin disorder [Unknown]
  - Pain in extremity [Unknown]
  - Diarrhoea [Unknown]
  - Rash [Unknown]
  - Pain in extremity [Not Recovered/Not Resolved]
  - Pain in extremity [Recovering/Resolving]

NARRATIVE: CASE EVENT DATE: 20140118
